FAERS Safety Report 10956215 (Version 1)
Quarter: 2015Q1

REPORT INFORMATION
  Report Type: Spontaneous
  Country: IT (occurrence: IT)
  Receive Date: 20150326
  Receipt Date: 20150326
  Transmission Date: 20150721
  Serious: Yes (Hospitalization)
  Sender: FDA-Public Use
  Company Number: IT-TEVA-549632ACC

PATIENT
  Age: 71 Year
  Sex: Female

DRUGS (4)
  1. ZYPREXA [Concomitant]
     Active Substance: OLANZAPINE
     Indication: PRODUCT USED FOR UNKNOWN INDICATION
  2. PAROXETINE [Suspect]
     Active Substance: PAROXETINE\PAROXETINE HYDROCHLORIDE
     Indication: INTENTIONAL SELF-INJURY
     Dates: start: 20150317, end: 20150317
  3. NEBIVOLOL [Suspect]
     Active Substance: NEBIVOLOL
     Indication: INTENTIONAL SELF-INJURY
     Dates: start: 20150317, end: 20150317
  4. TAVOR [Suspect]
     Active Substance: LORAZEPAM
     Indication: INTENTIONAL SELF-INJURY
     Route: 002
     Dates: start: 20150317, end: 20150317

REACTIONS (5)
  - Bradycardia [Recovering/Resolving]
  - Bradykinesia [Recovering/Resolving]
  - Bradyphrenia [Recovering/Resolving]
  - Sopor [Recovering/Resolving]
  - Drug abuse [Recovering/Resolving]

NARRATIVE: CASE EVENT DATE: 20150317
